FAERS Safety Report 6048485-1 (Version None)
Quarter: 2009Q1

REPORT INFORMATION
  Report Type: 
  Country: None (occurrence: None)
  Receive Date: 20090123
  Receipt Date: 20090120
  Transmission Date: 20090719
  Serious: Yes (Other)
  Sender: FDA-Public Use
  Company Number: B0531589A

PATIENT
  Age: 55 Year
  Sex: Female
  Weight: 89.6 kg

DRUGS (8)
  1. ROSIGLITAZONE [Suspect]
     Indication: TYPE 2 DIABETES MELLITUS
     Dosage: 4MG PER DAY
     Route: 048
     Dates: start: 20020613
  2. GLIPIZIDE [Concomitant]
     Indication: TYPE 2 DIABETES MELLITUS
     Dosage: 2.5MG PER DAY
     Route: 048
     Dates: start: 20080729
  3. NOVEL [Concomitant]
     Indication: HORMONE REPLACEMENT THERAPY
     Route: 048
  4. ALENDRONATE SODIUM [Concomitant]
  5. ASPIRIN [Concomitant]
     Dosage: 75MG PER DAY
  6. ATORVASTATIN [Concomitant]
     Dosage: 40MG PER DAY
  7. CALCICHEW [Concomitant]
  8. METFORMIN [Concomitant]
     Indication: TYPE 2 DIABETES MELLITUS
     Dosage: 500MG TWICE PER DAY
     Route: 048
     Dates: start: 20011201

REACTIONS (6)
  - CONDITION AGGRAVATED [None]
  - CUSHING'S SYNDROME [None]
  - GLYCOSYLATED HAEMOGLOBIN INCREASED [None]
  - INCREASED TENDENCY TO BRUISE [None]
  - OSTEOPOROSIS [None]
  - OSTEOPOROTIC FRACTURE [None]
